FAERS Safety Report 6290809-4 (Version None)
Quarter: 2009Q3

REPORT INFORMATION
  Report Type: 
  Country: None (occurrence: None)
  Receive Date: 20090730
  Receipt Date: 20090712
  Transmission Date: 20100115
  Serious: Yes (Other)
  Sender: FDA-Public Use
  Company Number: UA-AMGEN-UK342047

PATIENT
  Sex: Male

DRUGS (1)
  1. VECTIBIX [Suspect]
     Indication: COLORECTAL CANCER

REACTIONS (6)
  - CARCINOEMBRYONIC ANTIGEN INCREASED [None]
  - DERMATITIS [None]
  - DRY SKIN [None]
  - HAIR GROWTH ABNORMAL [None]
  - RASH [None]
  - SKIN FISSURES [None]
